FAERS Safety Report 21437101 (Version 1)
Quarter: 2022Q4

REPORT INFORMATION
  Report Type: Spontaneous
  Country: FR (occurrence: FR)
  Receive Date: 20221010
  Receipt Date: 20221010
  Transmission Date: 20230113
  Serious: Yes (Hospitalization)
  Sender: FDA-Public Use
  Company Number: None

PATIENT
  Age: 48 Year
  Sex: Female
  Weight: 50 kg

DRUGS (4)
  1. TOCILIZUMAB [Suspect]
     Active Substance: TOCILIZUMAB
     Indication: Still^s disease
     Route: 058
     Dates: start: 20211028, end: 20220831
  2. PREDNISONE [Concomitant]
     Active Substance: PREDNISONE
  3. ZINC GLUCONATE [Concomitant]
     Active Substance: ZINC GLUCONATE
  4. SOOLANTRA [Concomitant]
     Active Substance: IVERMECTIN

REACTIONS (5)
  - Alanine aminotransferase increased [Recovering/Resolving]
  - Fatigue [Recovered/Resolved]
  - Aspartate aminotransferase increased [Recovering/Resolving]
  - Headache [Recovered/Resolved]
  - Nausea [Recovered/Resolved]

NARRATIVE: CASE EVENT DATE: 20220601
